FAERS Safety Report 13175884 (Version 1)
Quarter: 2017Q1

REPORT INFORMATION
  Report Type: Spontaneous
  Country: FR (occurrence: FR)
  Receive Date: 20170201
  Receipt Date: 20170201
  Transmission Date: 20170428
  Serious: Yes (Other)
  Sender: FDA-Public Use
  Company Number: FR-B.I. PHARMACEUTICALS,INC./RIDGEFIELD-2017-BI-004780

PATIENT
  Sex: Male

DRUGS (4)
  1. VIRAMUNE [Suspect]
     Active Substance: NEVIRAPINE
     Indication: HIV INFECTION
     Route: 064
     Dates: end: 200505
  2. VIRAMUNE [Suspect]
     Active Substance: NEVIRAPINE
     Route: 048
     Dates: start: 200505, end: 200508
  3. COMBIVIR [Suspect]
     Active Substance: LAMIVUDINE\ZIDOVUDINE
     Indication: HIV INFECTION
     Dosage: FORM STRENGTH: 150MG/300MG
     Route: 064
     Dates: end: 200505
  4. COMBIVIR [Suspect]
     Active Substance: LAMIVUDINE\ZIDOVUDINE
     Dosage: FORM STRENGTH: 150MG/300MG
     Route: 048
     Dates: start: 200505, end: 200508

REACTIONS (2)
  - Abnormal behaviour [Not Recovered/Not Resolved]
  - Intellectual disability [Not Recovered/Not Resolved]
